FAERS Safety Report 11758110 (Version 1)
Quarter: 2015Q4

REPORT INFORMATION
  Report Type: Report from Study
  Country: DK (occurrence: IT)
  Receive Date: 20151120
  Receipt Date: 20151120
  Transmission Date: 20160304
  Serious: Yes (Other)
  Sender: FDA-Public Use
  Company Number: IT-FRI-1000081068

PATIENT
  Age: 26 Year
  Sex: Female

DRUGS (4)
  1. PASADEN [Suspect]
     Active Substance: ETIZOLAM
     Dosage: OVERDOSE: 20 DOSAGE FORMS
     Route: 048
     Dates: start: 20150813, end: 20150813
  2. CITALOPRAM [Suspect]
     Active Substance: CITALOPRAM HYDROBROMIDE
     Dosage: OVERDOSE: 20 GTT.
     Route: 048
     Dates: start: 20150813, end: 20150813
  3. CITALOPRAM [Suspect]
     Active Substance: CITALOPRAM HYDROBROMIDE
     Indication: ANXIETY DISORDER
     Route: 048
  4. PASADEN [Suspect]
     Active Substance: ETIZOLAM
     Indication: ANXIETY DISORDER
     Route: 048

REACTIONS (6)
  - Product use issue [Unknown]
  - Asthenia [Recovering/Resolving]
  - Dizziness [Recovering/Resolving]
  - Drug abuse [Recovering/Resolving]
  - Vision blurred [Recovering/Resolving]
  - Intentional overdose [Recovering/Resolving]

NARRATIVE: CASE EVENT DATE: 20150813
